FAERS Safety Report 20290363 (Version 1)
Quarter: 2022Q1

REPORT INFORMATION
  Report Type: Spontaneous
  Country: US (occurrence: None)
  Receive Date: 20220103
  Receipt Date: 20220103
  Transmission Date: 20220424
  Serious: No
  Sender: FDA-Public Use
  Company Number: None

PATIENT
  Age: 66 Year
  Sex: Male

DRUGS (1)
  1. ERLEADA [Suspect]
     Active Substance: APALUTAMIDE
     Indication: Prostate cancer
     Dosage: 120 EVERY DAY PO
     Route: 048
     Dates: start: 202102

REACTIONS (5)
  - Fatigue [None]
  - Asthenia [None]
  - Blood sodium decreased [None]
  - Feeling abnormal [None]
  - Abdominal pain upper [None]

NARRATIVE: CASE EVENT DATE: 20211201
